FAERS Safety Report 15851754 (Version 4)
Quarter: 2019Q2

REPORT INFORMATION
  Report Type: Report from Study
  Country: US (occurrence: US)
  Receive Date: 20190122
  Receipt Date: 20190416
  Transmission Date: 20190711
  Serious: Yes (Hospitalization, Disabling, Other)
  Sender: FDA-Public Use
  Company Number: US-IPSEN BIOPHARMACEUTICALS, INC.-2019-00671

PATIENT
  Sex: Female
  Weight: 29 kg

DRUGS (2)
  1. DEXAMETHASONE. [Concomitant]
     Active Substance: DEXAMETHASONE
     Indication: OEDEMA
     Route: 042
     Dates: end: 20190123
  2. ONIVYDE [Suspect]
     Active Substance: IRINOTECAN HYDROCHLORIDE
     Indication: BRAIN STEM GLIOMA
     Route: 065
     Dates: start: 20180807

REACTIONS (8)
  - Gait inability [Recovering/Resolving]
  - Brain oedema [Recovering/Resolving]
  - Hemiparesis [Recovered/Resolved]
  - Hemiparesis [Recovered/Resolved]
  - Disease progression [Recovering/Resolving]
  - Dysarthria [Recovering/Resolving]
  - Speech disorder [Recovering/Resolving]
  - Facial paralysis [Recovering/Resolving]

NARRATIVE: CASE EVENT DATE: 201901
